FAERS Safety Report 4758724-2 (Version None)
Quarter: 2005Q3

REPORT INFORMATION
  Report Type: 
  Country: None (occurrence: None)
  Receive Date: 20050830
  Receipt Date: 20050830
  Transmission Date: 20060218
  Serious: Yes (Other)
  Sender: FDA-Public Use
  Company Number: None

PATIENT
  Sex: Female
  Weight: 88.8 kg

DRUGS (13)
  1. CYCLOPHOSPHAMIDE [Suspect]
     Indication: MULTIPLE MYELOMA
     Dosage: SEE IMAGE
     Route: 042
     Dates: start: 20050811, end: 20050812
  2. MESNA [Suspect]
     Dosage: SEE IMAGE
     Route: 042
  3. G-CSF [Suspect]
     Dosage: SEE IMAGE
  4. ACYCLOVIR [Concomitant]
  5. APREPITANT [Concomitant]
  6. DEXAMETHASONE [Concomitant]
  7. FILGRASTIM [Concomitant]
  8. FLUCONAZOLE [Concomitant]
  9. MESNA [Concomitant]
  10. MOXIFLOXACIN HCL [Concomitant]
  11. ONDANSETRON [Concomitant]
  12. TAMOXIFEN CITRATE [Concomitant]
  13. WARFARIN [Concomitant]

REACTIONS (5)
  - BLOOD CULTURE POSITIVE [None]
  - CATHETER SITE DISCHARGE [None]
  - CATHETER SITE RELATED REACTION [None]
  - NEUTROPHIL COUNT DECREASED [None]
  - STAPHYLOCOCCAL INFECTION [None]
